FAERS Safety Report 21413011 (Version 3)
Quarter: 2022Q4

REPORT INFORMATION
  Report Type: Report from Study
  Country: TR (occurrence: TR)
  Receive Date: 20221005
  Receipt Date: 20221102
  Transmission Date: 20230113
  Serious: Yes (Hospitalization)
  Sender: FDA-Public Use
  Company Number: TR-ABBVIE-4137086

PATIENT
  Sex: Female
  Weight: 69 kg

DRUGS (4)
  1. CARBIDOPA\LEVODOPA [Suspect]
     Active Substance: CARBIDOPA\LEVODOPA
     Indication: Parkinson^s disease
     Dosage: MORNING DOSE (ML): 4.00 CONTINIOUS DOSE (ML): 2.40 EXTRA DOSE (ML): 1.00
     Route: 050
     Dates: start: 20220919
  2. CARBIDOPA\LEVODOPA [Suspect]
     Active Substance: CARBIDOPA\LEVODOPA
  3. NORVASC [Concomitant]
     Active Substance: AMLODIPINE BESYLATE
     Indication: Hypertension
     Dosage: 20 MILLIGRAM, FORM STRENGTH 10 MILLIGRAM
     Route: 048
     Dates: start: 2005
  4. Amantadine Sulfate (PK MERZ) [Concomitant]
     Indication: Parkinson^s disease
     Dosage: 200 MILLIGRAM, FORM STRENGTH 100 MILLIGRAM
     Route: 048
     Dates: start: 2015

REACTIONS (2)
  - Subileus [Recovered/Resolved]
  - Abdominal pain [Recovered/Resolved]

NARRATIVE: CASE EVENT DATE: 20220101
